FAERS Safety Report 7565161-4 (Version None)
Quarter: 2011Q2

REPORT INFORMATION
  Report Type: 
  Country: None (occurrence: None)
  Receive Date: 20110622
  Receipt Date: 20110526
  Transmission Date: 20111010
  Serious: Yes (Other)
  Sender: FDA-Public Use
  Company Number: PHFR2011GB03335

PATIENT
  Sex: Female

DRUGS (2)
  1. FEMARA [Suspect]
     Indication: BREAST CANCER
     Dosage: 2.5 MG, UNK
     Route: 048
     Dates: start: 20101003, end: 20101117
  2. CHOLESTYRAMINE RESIN [Concomitant]
     Dosage: UNK
     Route: 048

REACTIONS (3)
  - MIGRAINE [None]
  - PALPITATIONS [None]
  - EXTRASYSTOLES [None]
